FAERS Safety Report 18595352 (Version 1)
Quarter: 2020Q4

REPORT INFORMATION
  Report Type: Spontaneous
  Country: US (occurrence: US)
  Receive Date: 20201209
  Receipt Date: 20201209
  Transmission Date: 20210114
  Serious: Yes (Hospitalization)
  Sender: FDA-Public Use
  Company Number: None

PATIENT
  Age: 80 Year
  Sex: Female
  Weight: 78.93 kg

DRUGS (1)
  1. BAMLANIVIMAB. [Suspect]
     Active Substance: BAMLANIVIMAB
     Indication: COVID-19 TREATMENT

REACTIONS (5)
  - Chills [None]
  - Oxygen saturation decreased [None]
  - Wheezing [None]
  - Tachycardia [None]
  - Nausea [None]

NARRATIVE: CASE EVENT DATE: 20201208
